FAERS Safety Report 9074224 (Version 1)
Quarter: 2013Q1

REPORT INFORMATION
  Report Type: Report from Study
  Country: US (occurrence: US)
  Receive Date: 20130128
  Receipt Date: 20130128
  Transmission Date: 20140127
  Serious: No
  Sender: FDA-Public Use
  Company Number: US-ABBOTT-12P-163-0915308-00

PATIENT
  Age: 21 Year
  Sex: Male

DRUGS (4)
  1. HUMIRA 40 MG/0.8 ML PEN [Suspect]
     Indication: PSORIASIS
     Dates: start: 201102, end: 201109
  2. HUMIRA 40 MG/0.8 ML PEN [Suspect]
     Dates: start: 20120305
  3. HUMIRA 40 MG/0.8 ML PEN [Suspect]
     Dosage: DAY 8 DOSE
     Dates: start: 20120313
  4. ASACOL [Concomitant]
     Indication: COLITIS ULCERATIVE

REACTIONS (3)
  - Injection site erythema [Not Recovered/Not Resolved]
  - Injection site mass [Not Recovered/Not Resolved]
  - Injection site warmth [Not Recovered/Not Resolved]
